FAERS Safety Report 18142625 (Version 1)
Quarter: 2020Q3

REPORT INFORMATION
  Report Type: Spontaneous
  Country: US (occurrence: US)
  Receive Date: 20200812
  Receipt Date: 20200812
  Transmission Date: 20201103
  Serious: No
  Sender: FDA-Public Use
  Company Number: US-FRESENIUS KABI-FK202008268

PATIENT
  Age: 69 Year
  Sex: Female

DRUGS (2)
  1. FULVESTRANT INJECTION [Suspect]
     Active Substance: FULVESTRANT
     Indication: BREAST CANCER METASTATIC
     Dosage: 500 MG (SPLIT INTO TWO SHOTS)
     Route: 030
     Dates: start: 20200708
  2. FULVESTRANT INJECTION [Suspect]
     Active Substance: FULVESTRANT
     Dosage: 500 MG (SPLIT INTO TWO SHOTS)
     Route: 030
     Dates: start: 20200805

REACTIONS (5)
  - Gait disturbance [Unknown]
  - Injection site pain [Recovering/Resolving]
  - Fatigue [Recovering/Resolving]
  - Injection site pain [Recovered/Resolved]
  - Fatigue [Recovered/Resolved]

NARRATIVE: CASE EVENT DATE: 20200708
